FAERS Safety Report 10154798 (Version 2)
Quarter: 2014Q2

REPORT INFORMATION
  Report Type: Spontaneous
  Country: US (occurrence: US)
  Receive Date: 20140506
  Receipt Date: 20140508
  Transmission Date: 20141212
  Serious: No
  Sender: FDA-Public Use
  Company Number: US-BAYER-2014-065574

PATIENT
  Sex: Female

DRUGS (1)
  1. CLIMARA [Suspect]
     Indication: MENOPAUSE
     Dosage: UNK
     Route: 062
     Dates: start: 2011

REACTIONS (5)
  - Product adhesion issue [None]
  - Product adhesion issue [None]
  - Vulvovaginal dryness [None]
  - Night sweats [None]
  - Inappropriate schedule of drug administration [None]
